FAERS Safety Report 4277865-X (Version None)
Quarter: 2004Q1

REPORT INFORMATION
  Report Type: 
  Country: None (occurrence: None)
  Receive Date: 20040121
  Receipt Date: 20040112
  Transmission Date: 20041129
  Serious: Yes (Life-Threatening, Hospitalization, Other)
  Sender: FDA-Public Use
  Company Number: 2004002200

PATIENT
  Age: 65 Year
  Sex: Female

DRUGS (5)
  1. MAGNEX (CEFOPERAZONE, SULBACTAM) [Suspect]
     Indication: INTESTINAL OBSTRUCTION
     Dosage: 3 GRAM (TID), INTRAVENOUS
     Route: 042
     Dates: start: 20031225, end: 20031228
  2. MAGNEX (CEFOPERAZONE, SULBACTAM) [Suspect]
     Indication: INTESTINAL PERFORATION
     Dosage: 3 GRAM (TID), INTRAVENOUS
     Route: 042
     Dates: start: 20031225, end: 20031228
  3. MAGNEX (CEFOPERAZONE, SULBACTAM) [Suspect]
     Indication: PERITONITIS
     Dosage: 3 GRAM (TID), INTRAVENOUS
     Route: 042
     Dates: start: 20031225, end: 20031228
  4. AMIKACIN [Concomitant]
  5. METRONIDAZOLE [Concomitant]

REACTIONS (2)
  - HAEMATURIA [None]
  - THROMBOCYTOPENIA [None]
